FAERS Safety Report 16702703 (Version 1)
Quarter: 2019Q3

REPORT INFORMATION
  Report Type: Spontaneous
  Country: US (occurrence: US)
  Receive Date: 20190814
  Receipt Date: 20190814
  Transmission Date: 20191004
  Serious: Yes (Hospitalization)
  Sender: FDA-Public Use
  Company Number: US-LANNETT COMPANY, INC.-US-2019LAN001054

PATIENT
  Age: 64 Year
  Sex: Female

DRUGS (2)
  1. PANTOPRAZOLE SODIUM. [Suspect]
     Active Substance: PANTOPRAZOLE SODIUM
     Indication: OESOPHAGEAL DISORDER
  2. PANTOPRAZOLE SODIUM. [Suspect]
     Active Substance: PANTOPRAZOLE SODIUM
     Indication: GASTROOESOPHAGEAL REFLUX DISEASE
     Dosage: 2 DF, QD
     Route: 048
     Dates: start: 2016, end: 20190728

REACTIONS (22)
  - Hyperhidrosis [Unknown]
  - Sleep disorder [Unknown]
  - Arthralgia [Unknown]
  - Product dose omission [Unknown]
  - Abdominal pain upper [Unknown]
  - Flatulence [Unknown]
  - Face oedema [Unknown]
  - Diarrhoea [Unknown]
  - Heart rate increased [Unknown]
  - Blood urine present [Unknown]
  - Nausea [Unknown]
  - Constipation [Unknown]
  - Urine output decreased [Unknown]
  - Vomiting [Unknown]
  - Somnolence [Unknown]
  - Oesophageal pain [Unknown]
  - Hypertension [Recovered/Resolved]
  - Urine abnormality [Unknown]
  - Peripheral swelling [Unknown]
  - Asthenia [Unknown]
  - Muscle spasms [Unknown]
  - Diverticulitis [Unknown]

NARRATIVE: CASE EVENT DATE: 2017
